FAERS Safety Report 6971460-7 (Version None)
Quarter: 2010Q3

REPORT INFORMATION
  Report Type: 
  Country: None (occurrence: None)
  Receive Date: 20100903
  Receipt Date: 20100821
  Transmission Date: 20110219
  Serious: Yes (Other)
  Sender: FDA-Public Use
  Company Number: 2010AP001852

PATIENT

DRUGS (1)
  1. BUPROPION HYDROCHLORIDE [Suspect]
     Dosage: 100 MG;QD;TRPL
     Route: 064

REACTIONS (4)
  - FOETAL ARRHYTHMIA [None]
  - FOETAL DISORDER [None]
  - MATERNAL DRUGS AFFECTING FOETUS [None]
  - SUPRAVENTRICULAR EXTRASYSTOLES [None]
